FAERS Safety Report 16416282 (Version 2)
Quarter: 2019Q2

REPORT INFORMATION
  Report Type: Report from Study
  Country: US (occurrence: US)
  Receive Date: 20190611
  Receipt Date: 20190618
  Transmission Date: 20190711
  Serious: Yes (Hospitalization, Other)
  Sender: FDA-Public Use
  Company Number: US-GILEAD-2019-0412760

PATIENT
  Age: 69 Year
  Sex: Female
  Weight: 84.35 kg

DRUGS (36)
  1. DEPLIN [Concomitant]
     Active Substance: LEVOMEFOLATE CALCIUM
  2. L-METHYLFOLATE [Concomitant]
     Active Substance: LEVOMEFOLIC ACID
  3. VITAMIN E NATURAL [TOCOPHERYL ACETATE] [Concomitant]
  4. GLUCOSAMINE [Concomitant]
     Active Substance: GLUCOSAMINE
  5. PRAVASTATIN. [Concomitant]
     Active Substance: PRAVASTATIN
  6. PREDNISONE. [Concomitant]
     Active Substance: PREDNISONE
  7. RESTASIS [Concomitant]
     Active Substance: CYCLOSPORINE
  8. TRAZODONE [Concomitant]
     Active Substance: TRAZODONE HYDROCHLORIDE
  9. VALSARTAN. [Concomitant]
     Active Substance: VALSARTAN
  10. FLONASE [Concomitant]
     Active Substance: FLUTICASONE PROPIONATE
  11. NORCO [Concomitant]
     Active Substance: ACETAMINOPHEN\HYDROCODONE BITARTRATE
  12. AMBRISENTAN [Suspect]
     Active Substance: AMBRISENTAN
     Indication: PULMONARY ARTERIAL HYPERTENSION
     Dosage: 10 MG, QD
     Route: 048
     Dates: start: 20180724
  13. AMBRISENTAN [Suspect]
     Active Substance: AMBRISENTAN
     Indication: CONNECTIVE TISSUE DISORDER
  14. BETASERON [Concomitant]
     Active Substance: INTERFERON BETA-1B
  15. ESZOPICLONE. [Concomitant]
     Active Substance: ESZOPICLONE
  16. OXYGEN. [Concomitant]
     Active Substance: OXYGEN
  17. CYANOCOBALAMIN. [Concomitant]
     Active Substance: CYANOCOBALAMIN
  18. NEFAZODONE [Concomitant]
     Active Substance: NEFAZODONE
  19. POTASSIUM CHLORIDE. [Concomitant]
     Active Substance: POTASSIUM CHLORIDE
  20. WARFARIN [Concomitant]
     Active Substance: WARFARIN
  21. AZATHIOPRINE. [Concomitant]
     Active Substance: AZATHIOPRINE
  22. LIOTHYRONINE [Concomitant]
     Active Substance: LIOTHYRONINE
  23. VITAMIN D3 [Concomitant]
     Active Substance: CHOLECALCIFEROL
  24. DEXTRAN [Concomitant]
     Active Substance: DEXTRAN
  25. LASIX [Concomitant]
     Active Substance: FUROSEMIDE
  26. MAGNESIUM CITRATE. [Concomitant]
     Active Substance: MAGNESIUM CITRATE
  27. DESYREL [Concomitant]
     Active Substance: TRAZODONE HYDROCHLORIDE
  28. CYCLOBENZAPRINE. [Concomitant]
     Active Substance: CYCLOBENZAPRINE
  29. VITAMIN C [Concomitant]
     Active Substance: ASCORBIC ACID
  30. CIALIS [Concomitant]
     Active Substance: TADALAFIL
  31. VOLTAREN [Concomitant]
     Active Substance: DICLOFENAC SODIUM
  32. LUNESTA [Concomitant]
     Active Substance: ESZOPICLONE
  33. METOPROLOL. [Concomitant]
     Active Substance: METOPROLOL
  34. CARDIZEM [Concomitant]
     Active Substance: DILTIAZEM HYDROCHLORIDE
  35. TAMBOCOR [Concomitant]
     Active Substance: FLECAINIDE ACETATE
  36. FISH OIL [Concomitant]
     Active Substance: FISH OIL

REACTIONS (1)
  - Small intestinal obstruction [Recovered/Resolved]
